FAERS Safety Report 15088604 (Version 2)
Quarter: 2018Q3

REPORT INFORMATION
  Report Type: Spontaneous
  Country: US (occurrence: US)
  Receive Date: 20180629
  Receipt Date: 20180706
  Transmission Date: 20181010
  Serious: Yes (Hospitalization, Other)
  Sender: FDA-Public Use
  Company Number: US-AMGEN-USASP2018087230

PATIENT
  Age: 66 Year
  Sex: Male
  Weight: 124.26 kg

DRUGS (2)
  1. XELJANZ XR [Concomitant]
     Active Substance: TOFACITINIB CITRATE
     Indication: RHEUMATOID ARTHRITIS
     Dosage: 11 MG, QD
     Route: 048
  2. ENBREL [Suspect]
     Active Substance: ETANERCEPT
     Indication: RHEUMATOID ARTHRITIS
     Dosage: UNK UNK, QWK
     Route: 058
     Dates: start: 20161024, end: 20161128

REACTIONS (8)
  - Nausea [Recovering/Resolving]
  - Arthropod bite [Unknown]
  - Atrial fibrillation [Recovering/Resolving]
  - Fluid retention [Recovering/Resolving]
  - Musculoskeletal stiffness [Unknown]
  - Swelling face [Recovered/Resolved]
  - Dyspnoea exertional [Recovered/Resolved]
  - Lethargy [Recovered/Resolved]

NARRATIVE: CASE EVENT DATE: 2016
